FAERS Safety Report 7571640-6 (Version None)
Quarter: 2011Q2

REPORT INFORMATION
  Report Type: 
  Country: None (occurrence: None)
  Receive Date: 20110624
  Receipt Date: 20110621
  Transmission Date: 20111010
  Serious: Yes (Hospitalization)
  Sender: FDA-Public Use
  Company Number: IT-MERCK-1105ITA00047

PATIENT
  Age: 4 Year
  Sex: Male

DRUGS (2)
  1. FLUTICASONE PROPIONATE [Concomitant]
     Route: 065
  2. SINGULAIR [Suspect]
     Indication: ASTHMA PROPHYLAXIS
     Route: 048
     Dates: start: 20101001

REACTIONS (2)
  - DYSPNOEA [None]
  - PALPITATIONS [None]
